FAERS Safety Report 10652570 (Version 3)
Quarter: 2015Q1

REPORT INFORMATION
  Report Type: Spontaneous
  Country: US (occurrence: US)
  Receive Date: 20141215
  Receipt Date: 20150220
  Transmission Date: 20150720
  Serious: Yes (Other)
  Sender: FDA-Public Use
  Company Number: US-BAYER-2014-182966

PATIENT
  Age: 23 Year
  Sex: Female
  Weight: 49 kg

DRUGS (1)
  1. MIRENA [Suspect]
     Active Substance: LEVONORGESTREL
     Indication: CONTRACEPTION
     Dosage: 20 MCG/24HR, CONT
     Route: 015
     Dates: start: 20100924, end: 20120724

REACTIONS (9)
  - Device dislocation [None]
  - Pelvic pain [None]
  - Device issue [None]
  - Menorrhagia [None]
  - Uterine perforation [None]
  - Vaginal haemorrhage [None]
  - Urinary tract infection [None]
  - Uterine pain [None]
  - Injury [None]

NARRATIVE: CASE EVENT DATE: 201009
